FAERS Safety Report 9705701 (Version 1)
Quarter: 2013Q4

REPORT INFORMATION
  Report Type: Spontaneous
  Country: US (occurrence: US)
  Receive Date: 20131122
  Receipt Date: 20131122
  Transmission Date: 20140711
  Serious: Yes (Other)
  Sender: FDA-Public Use
  Company Number: US-GILEAD-2008-0017761

PATIENT
  Age: 77 Year
  Sex: Female

DRUGS (15)
  1. LETAIRIS [Suspect]
     Indication: PULMONARY ARTERIAL HYPERTENSION
     Route: 048
     Dates: start: 20080712, end: 20080716
  2. DYNACIRC [Concomitant]
  3. ALTACE [Concomitant]
  4. PLAVIX [Concomitant]
  5. VYTORIN [Concomitant]
  6. TOPROL XL [Concomitant]
  7. ASPIRIN [Concomitant]
  8. ADVAIR [Concomitant]
  9. LASIX [Concomitant]
  10. IRON [Concomitant]
  11. CALCIUM [Concomitant]
  12. VITAMIN C [Concomitant]
  13. CENTRUM [Concomitant]
  14. FISH OIL [Concomitant]
  15. GINGKO BILOBA [Concomitant]

REACTIONS (2)
  - Dyspnoea [Recovered/Resolved]
  - Joint swelling [Recovered/Resolved]
